FAERS Safety Report 14706531 (Version 1)
Quarter: 2018Q2

REPORT INFORMATION
  Report Type: Report from Study
  Country: US (occurrence: US)
  Receive Date: 20180402
  Receipt Date: 20180402
  Transmission Date: 20180711
  Serious: Yes (Death)
  Sender: FDA-Public Use
  Company Number: US-ACTELION-A-NJ2018-169897

PATIENT
  Age: 86 Year
  Sex: Female

DRUGS (5)
  1. TRACLEER [Suspect]
     Active Substance: BOSENTAN
     Indication: PULMONARY ARTERIAL HYPERTENSION
     Dosage: 125 MG, UNK
     Route: 048
     Dates: start: 20121220
  2. TYVASO [Concomitant]
     Active Substance: TREPROSTINIL
     Dosage: 0.6 ML, UNK
  3. ADEMPAS [Concomitant]
     Active Substance: RIOCIGUAT
  4. ORENITRAM [Concomitant]
     Active Substance: TREPROSTINIL
  5. FUROSEMIDE. [Concomitant]
     Active Substance: FUROSEMIDE

REACTIONS (1)
  - Death [Fatal]

NARRATIVE: CASE EVENT DATE: 20180326
